FAERS Safety Report 4280559-8 (Version None)
Quarter: 2004Q1

REPORT INFORMATION
  Report Type: 
  Country: None (occurrence: None)
  Receive Date: 20040127
  Receipt Date: 20040115
  Transmission Date: 20041129
  Serious: Yes (Hospitalization)
  Sender: FDA-Public Use
  Company Number: 2004002684

PATIENT
  Age: 82 Year
  Sex: Male

DRUGS (5)
  1. ZYRTEC [Suspect]
     Indication: ILL-DEFINED DISORDER
     Dosage: 10 MG (DAILY), ORAL
     Route: 048
     Dates: start: 20030515, end: 20030528
  2. APOREX (PARACETAMOL, DEXTROPROPOXYPHENE HYDROCHLORIDE) [Suspect]
     Indication: CHEST PAIN
     Dosage: 180 MG (DAILY), ORAL
     Route: 048
     Dates: start: 20030513, end: 20030526
  3. PROPRANOLOL [Concomitant]
  4. OMEPRAZOLE [Concomitant]
  5. MACROGOL [Concomitant]

REACTIONS (1)
  - LIVER FUNCTION TEST ABNORMAL [None]
